FAERS Safety Report 9267272 (Version 2)
Quarter: 2013Q3

REPORT INFORMATION
  Report Type: Spontaneous
  Country: JP (occurrence: JP)
  Receive Date: 20130502
  Receipt Date: 20130823
  Transmission Date: 20140515
  Serious: Yes (Hospitalization)
  Sender: FDA-Public Use
  Company Number: PHHY2013JP042409

PATIENT
  Age: 36 Year
  Sex: Female

DRUGS (4)
  1. CLOZARIL [Suspect]
     Indication: SCHIZOPHRENIA
     Dosage: UNK
     Route: 048
     Dates: start: 20110330
  2. CLOZARIL [Suspect]
     Dosage: 500 MG, DAILY DOSE
     Route: 048
  3. CLOZARIL [Suspect]
     Dosage: 600 MG, DAILY DOSE
     Route: 048
  4. LIMAS [Suspect]
     Indication: SCHIZOPHRENIA
     Dosage: 600 MG
     Route: 048
     Dates: start: 201304, end: 20130422

REACTIONS (2)
  - Altered state of consciousness [Recovered/Resolved]
  - Malaise [Recovered/Resolved]
